FAERS Safety Report 19083575 (Version 4)
Quarter: 2021Q2

REPORT INFORMATION
  Report Type: Spontaneous
  Country: US (occurrence: US)
  Receive Date: 20210401
  Receipt Date: 20210501
  Transmission Date: 20210717
  Serious: Yes (Other)
  Sender: FDA-Public Use
  Company Number: US-LUPIN PHARMACEUTICALS INC.-2021-04084

PATIENT
  Sex: Female
  Weight: 68.03 kg

DRUGS (2)
  1. LISINOPRIL TABLETS USP, 2.5MG [Suspect]
     Active Substance: LISINOPRIL
     Indication: CARDIAC DISORDER
     Dosage: 2.5 MILLIGRAM
     Route: 048
     Dates: start: 202008
  2. ELIQUIS [Concomitant]
     Active Substance: APIXABAN
     Indication: CARDIAC DISORDER
     Dosage: UNK UNK, BID (5MG IN THE MORNING AND 5MG IN THE EVENING)
     Route: 065

REACTIONS (4)
  - Product dispensing error [Unknown]
  - Blood pressure increased [Unknown]
  - Malaise [Unknown]
  - Adverse drug reaction [Unknown]
